FAERS Safety Report 5564752-X (Version None)
Quarter: 2007Q4

REPORT INFORMATION
  Report Type: 
  Country: None (occurrence: None)
  Receive Date: 20071218
  Receipt Date: 20071211
  Transmission Date: 20080405
  Serious: Yes (Life-Threatening, Hospitalization)
  Sender: FDA-Public Use
  Company Number: BE-WYE-G00755007

PATIENT
  Age: 51 Year
  Sex: Female
  Weight: 66 kg

DRUGS (5)
  1. EFFEXOR [Suspect]
     Indication: DEPRESSION
     Route: 048
     Dates: start: 20070510
  2. RIVOTRIL [Concomitant]
     Route: 048
     Dates: start: 20070515
  3. PROPULSID [Concomitant]
     Indication: DYSPEPSIA
     Route: 048
     Dates: start: 19970101
  4. MIRTAZAPINE [Concomitant]
     Indication: DEPRESSION
     Route: 048
     Dates: start: 20070724
  5. MIRTAZAPINE [Concomitant]
     Indication: INSOMNIA

REACTIONS (1)
  - SPLENIC RUPTURE [None]
